FAERS Safety Report 4323970-9 (Version None)
Quarter: 2004Q1

REPORT INFORMATION
  Report Type: 
  Country: None (occurrence: None)
  Receive Date: 20040323
  Receipt Date: 20040310
  Transmission Date: 20041129
  Serious: Yes (Hospitalization)
  Sender: FDA-Public Use
  Company Number: 2004-01027

PATIENT
  Age: 55 Year
  Sex: Male
  Weight: 76.6 kg

DRUGS (5)
  1. ALLOPURINOL (WATSON LABORATORIES) (ALLOPURINOL) TABLET, 300 MG [Suspect]
     Indication: GOUT
     Dosage: 300 MG, DAILY, ORAL
     Route: 048
     Dates: start: 19910101, end: 20040302
  2. VIOXX [Suspect]
     Indication: ARTHRITIS
     Dosage: 25 MG, DAILY, ORAL
     Route: 048
     Dates: start: 20010101, end: 20040308
  3. NEURONTIN [Concomitant]
  4. ACETYLSALICYLIC ACID SRT [Concomitant]
  5. MULTIVITAMINS (ERGOCALCIFEROL/ASCORBIC ACID, FOLIC ACID, THIAMINE HYDR [Concomitant]

REACTIONS (5)
  - ALANINE AMINOTRANSFERASE INCREASED [None]
  - ASPARTATE AMINOTRANSFERASE INCREASED [None]
  - BLOOD ALKALINE PHOSPHATASE INCREASED [None]
  - BLOOD BILIRUBIN INCREASED [None]
  - PLEURISY [None]
